FAERS Safety Report 8570224-0 (Version None)
Quarter: 2012Q3

REPORT INFORMATION
  Report Type: 
  Country: None (occurrence: None)
  Receive Date: 20120803
  Receipt Date: 20120730
  Transmission Date: 20120928
  Serious: Yes (Death, Life-Threatening, Other)
  Sender: FDA-Public Use
  Company Number: FR-ASTRAZENECA-2012SE53889

PATIENT
  Age: 95 Year
  Sex: Male

DRUGS (2)
  1. UMULINE [Suspect]
     Route: 042
     Dates: start: 20120601, end: 20120601
  2. NEXIUM [Suspect]
     Route: 042
     Dates: start: 20120601, end: 20120601

REACTIONS (5)
  - GASTRIC ULCER [None]
  - ANAPHYLACTIC SHOCK [None]
  - URTICARIA [None]
  - GASTROINTESTINAL HAEMORRHAGE [None]
  - CARDIAC ARREST [None]
